FAERS Safety Report 8517228-1 (Version None)
Quarter: 2012Q3

REPORT INFORMATION
  Report Type: 
  Country: None (occurrence: None)
  Receive Date: 20120718
  Receipt Date: 20120711
  Transmission Date: 20120928
  Serious: Yes (Other)
  Sender: FDA-Public Use
  Company Number: US-PFIZER INC-2012168003

PATIENT
  Sex: Female

DRUGS (1)
  1. REVATIO [Suspect]
     Indication: RESPIRATORY FAILURE
     Dosage: 20 MG, 3X/DAY
     Dates: start: 20120401

REACTIONS (1)
  - BLINDNESS UNILATERAL [None]
